FAERS Safety Report 6065624-7 (Version None)
Quarter: 2009Q1

REPORT INFORMATION
  Report Type: 
  Country: None (occurrence: None)
  Receive Date: 20090130
  Receipt Date: 20090120
  Transmission Date: 20090719
  Serious: Yes (Other)
  Sender: FDA-Public Use
  Company Number: 100#03#2009-00289

PATIENT
  Age: 89 Year
  Sex: Female

DRUGS (19)
  1. ALENDRONIC ACID (ALENDRONIC ACID) [Suspect]
     Indication: DRUG USE FOR UNKNOWN INDICATION
     Dosage: 1 DF ONCE WEEKLY
  2. AMOXICILLIN [Concomitant]
  3. BENDROFLUMETHIAZIDE (BENDROFLUAZIDE) [Concomitant]
  4. BETAMETHASONE VALERATE (BETAMETHASONE) [Concomitant]
  5. CALCICHEW (CALCIUM CARBONATE) [Concomitant]
  6. GAVISCON [Concomitant]
  7. HYDROXYZINE HYDROCHLORIDE (HYDROXYZINE) [Concomitant]
  8. LORATADINE [Concomitant]
  9. PREDNISOLONE [Concomitant]
  10. SALBUTAMOL (SALBUTAMOL) [Concomitant]
  11. SLO-PHYLLIN (THEOPHYLLINE) [Concomitant]
  12. SYMBICORT [Concomitant]
  13. TIOTROPIUM BROMIDE (TIOTROPIUM BROMIDE) [Concomitant]
  14. TRAMADOL HCL [Concomitant]
  15. VENTOLIN [Concomitant]
  16. BUDESONIDE+FORMOTEROL (BUDESONIDE, FORMOTEROL) [Concomitant]
  17. ENSURE PLUS FIBRE LIQUID FEED (UNKNOWN) [Concomitant]
  18. ENSURE PLUS LIQUID FEED (ORANGE) TETRAPAK (UNKNOWN) [Concomitant]
  19. CALCIUM CARBONATE AND CHOLECALCIFEROL (CHEWABLE TABLET) (CALCIUM CARBO [Concomitant]

REACTIONS (2)
  - LIP SWELLING [None]
  - PAIN [None]
